FAERS Safety Report 4906978-1 (Version None)
Quarter: 2006Q1

REPORT INFORMATION
  Report Type: 
  Country: None (occurrence: None)
  Receive Date: 20060207
  Receipt Date: 20060204
  Transmission Date: 20060701
  Serious: Yes (Other)
  Sender: FDA-Public Use
  Company Number: 218275

PATIENT
  Sex: Male

DRUGS (1)
  1. AVASTIN(BEVACIZUMBA) PWDR + SOLVENT,INFUSION SOLN, 100MG [Suspect]

REACTIONS (1)
  - OSTEONECROSIS [None]
